FAERS Safety Report 17325050 (Version 1)
Quarter: 2020Q1

REPORT INFORMATION
  Report Type: Spontaneous
  Country: RU (occurrence: RU)
  Receive Date: 20200127
  Receipt Date: 20200127
  Transmission Date: 20200409
  Serious: Yes (Disabling)
  Sender: FDA-Public Use
  Company Number: RU-ASTRAZENECA-2020SE11371

PATIENT

DRUGS (2)
  1. BRILINTA [Suspect]
     Active Substance: TICAGRELOR
     Dosage: 60.0MG UNKNOWN
     Route: 048
  2. BRILINTA [Suspect]
     Active Substance: TICAGRELOR
     Dosage: 90.0MG UNKNOWN
     Route: 048

REACTIONS (1)
  - Ischaemic stroke [Unknown]
